FAERS Safety Report 9756564 (Version 1)
Quarter: 2013Q4

REPORT INFORMATION
  Report Type: Spontaneous
  Country: US (occurrence: US)
  Receive Date: 20131213
  Receipt Date: 20131213
  Transmission Date: 20140711
  Serious: No
  Sender: FDA-Public Use
  Company Number: US-GLAXOSMITHKLINE-A1046232A

PATIENT
  Age: 65 Year
  Sex: Female

DRUGS (2)
  1. NICODERM CQ 14MG [Suspect]
     Indication: SMOKING CESSATION THERAPY
     Route: 062
     Dates: end: 20131019
  2. NICODERM CQ 21MG [Concomitant]
     Indication: SMOKING CESSATION THERAPY
     Route: 062
     Dates: start: 20130826

REACTIONS (5)
  - Fatigue [Unknown]
  - Dizziness [Recovering/Resolving]
  - Disturbance in attention [Recovering/Resolving]
  - Abnormal dreams [Recovering/Resolving]
  - Disorientation [Recovering/Resolving]
